FAERS Safety Report 8593942 (Version 3)
Quarter: 2014Q1

REPORT INFORMATION
  Report Type: Spontaneous
  Country: US (occurrence: US)
  Receive Date: 20120604
  Receipt Date: 20140310
  Transmission Date: 20141002
  Serious: Yes (Other)
  Sender: FDA-Public Use
  Company Number: US-PFIZER INC-2012131388

PATIENT
  Age: 85 Year
  Sex: Female

DRUGS (19)
  1. ATENOLOL [Suspect]
     Dosage: 25 MG, UNK
     Route: 048
     Dates: start: 200805, end: 200805
  2. ATENOLOL [Suspect]
     Dosage: 25 MG, UNK
     Route: 048
     Dates: start: 20080516
  3. ATENOLOL [Suspect]
     Dosage: 25 MG, UNK
     Route: 048
     Dates: start: 20080516
  4. METOPROLOL TARTRATE [Suspect]
     Indication: BLOOD PRESSURE
     Dosage: 50 MG, UNK
     Route: 048
     Dates: start: 200708, end: 20080824
  5. METOPROLOL TARTRATE [Suspect]
     Dosage: UNK
  6. NIFEDIPINE [Suspect]
     Dosage: 30 MG, UNK
     Dates: start: 20080530
  7. HYDROCHLOROTHIAZIDE/LISINOPRIL [Suspect]
     Dosage: 10/12.5 MG
     Route: 048
     Dates: start: 20070824, end: 200805
  8. HYDROCHLOROTHIAZIDE/LISINOPRIL [Suspect]
     Dosage: 10/12.5 MG
     Route: 048
  9. HYDROCHLOROTHIAZIDE/LISINOPRIL [Suspect]
     Dosage: 12.5 MG
     Route: 048
  10. TOPROL XL [Suspect]
     Indication: HYPERTENSION
     Dosage: 50 MG, 2X/DAY
     Route: 048
  11. TOPROL XL [Suspect]
     Dosage: 100 MG, 2X/DAY
     Route: 048
  12. TOPROL XL [Suspect]
     Dosage: 200 MG 0.5 TABLET AM AND PM FOR APPROXIMATELY 10 YEARS
     Route: 048
  13. TOPROL XL [Suspect]
     Dosage: UNK
     Route: 048
  14. TOPROL XL [Suspect]
     Dosage: UNK
     Route: 065
  15. COREG [Suspect]
     Dosage: 20 MG
     Dates: start: 200801
  16. SYNTHROID [Concomitant]
     Dosage: 50 UG, UNK
  17. HYOPHEN [Concomitant]
     Dosage: UNK
  18. OMEPRAZOLE [Concomitant]
     Dosage: 20 MG, UNK
  19. CELEBREX [Concomitant]
     Dosage: 200 MG, UNK

REACTIONS (20)
  - Eye haemorrhage [Recovered/Resolved]
  - Hypertension [Recovered/Resolved]
  - Ocular hyperaemia [Unknown]
  - Malaise [Unknown]
  - Muscle spasms [Unknown]
  - Muscular weakness [Unknown]
  - Asthenia [Unknown]
  - Dizziness [Unknown]
  - Constipation [Unknown]
  - Fatigue [Unknown]
  - Abdominal discomfort [Unknown]
  - Fatigue [Unknown]
  - Hypoaesthesia [Unknown]
  - Paraesthesia [Unknown]
  - Confusional state [Unknown]
  - Drug ineffective [Unknown]
  - Tremor [Unknown]
  - Influenza [Unknown]
  - Activities of daily living impaired [Unknown]
  - Nausea [Unknown]
